FAERS Safety Report 25886786 (Version 1)
Quarter: 2025Q4

REPORT INFORMATION
  Report Type: Spontaneous
  Country: TN (occurrence: TN)
  Receive Date: 20251006
  Receipt Date: 20251006
  Transmission Date: 20260118
  Serious: Yes (Other)
  Sender: NOVARTIS
  Company Number: TN-002147023-NVSC2025TN150174

PATIENT
  Age: 26 Year
  Sex: Male

DRUGS (4)
  1. PAZOPANIB [Suspect]
     Active Substance: PAZOPANIB
     Indication: Chromophobe renal cell carcinoma
     Dosage: UNK
     Route: 065
     Dates: start: 202008
  2. PAZOPANIB [Suspect]
     Active Substance: PAZOPANIB
     Indication: Metastases to lung
  3. CABOZANTINIB [Concomitant]
     Active Substance: CABOZANTINIB
     Indication: Chromophobe renal cell carcinoma
     Dosage: 60 MG, QD
     Route: 065
     Dates: start: 202301
  4. CABOZANTINIB [Concomitant]
     Active Substance: CABOZANTINIB
     Indication: Metastases to lung

REACTIONS (3)
  - Metastases to lung [Unknown]
  - Malignant neoplasm progression [Unknown]
  - Drug ineffective [Unknown]

NARRATIVE: CASE EVENT DATE: 20221101
